FAERS Safety Report 23525007 (Version 1)
Quarter: 2024Q1

REPORT INFORMATION
  Report Type: Spontaneous
  Country: NO (occurrence: NO)
  Receive Date: 20240215
  Receipt Date: 20240215
  Transmission Date: 20240410
  Serious: Yes (Other)
  Sender: FDA-Public Use
  Company Number: NO-COLLEGIUM PHARMACEUTICAL, INC.-20240200096

PATIENT

DRUGS (1)
  1. XTAMPZA ER [Suspect]
     Active Substance: OXYCODONE
     Indication: Pain
     Dosage: UNK, UNKNOWN
     Route: 065

REACTIONS (3)
  - Hallucination [Unknown]
  - Paranoia [Unknown]
  - Nightmare [Unknown]
